FAERS Safety Report 6497671-5 (Version None)
Quarter: 2009Q4

REPORT INFORMATION
  Report Type: 
  Country: None (occurrence: None)
  Receive Date: 20091215
  Receipt Date: 20091204
  Transmission Date: 20100525
  Serious: Yes (Hospitalization)
  Sender: FDA-Public Use
  Company Number: AU-ELI_LILLY_AND_COMPANY-AU200912000991

PATIENT
  Sex: Male
  Weight: 88.9 kg

DRUGS (13)
  1. PEMETREXED [Suspect]
     Indication: NON-SMALL CELL LUNG CANCER
     Dosage: 500 MG/M2, ON D1 EVERY 21 DAYS
     Route: 042
     Dates: start: 20090612, end: 20090821
  2. CISPLATIN [Suspect]
     Indication: NON-SMALL CELL LUNG CANCER
     Dosage: 75 MG/M2, ON D1 EVERY 21 DAYS
     Route: 042
     Dates: start: 20090612, end: 20090821
  3. PLACEBO [Suspect]
     Indication: NON-SMALL CELL LUNG CANCER
     Dosage: UNK, ON D1 EVERY 21 DAYS
     Route: 042
     Dates: start: 20090911
  4. FOLIC ACID [Concomitant]
     Indication: PROPHYLAXIS
     Dosage: UNK, UNK
     Dates: start: 20090101
  5. VIT B12 [Concomitant]
     Indication: PROPHYLAXIS
     Dosage: UNK, UNK
     Dates: start: 20090605
  6. DEXAMETHASONE TAB [Concomitant]
     Indication: PROPHYLAXIS
     Dosage: UNK, UNK
     Dates: start: 20090611
  7. OXYCODONE [Concomitant]
     Indication: PAIN
     Dates: start: 20090501
  8. ACETAMINOPHEN AND CODEINE PHOSPHATE [Concomitant]
     Indication: PAIN
     Dates: start: 19500101
  9. LIPITOR [Concomitant]
     Indication: BLOOD CHOLESTEROL
     Dates: start: 20090605
  10. SORBITOL [Concomitant]
     Indication: CONSTIPATION
     Dates: start: 20090529
  11. COLOXYL /00061602/ [Concomitant]
     Indication: CONSTIPATION
     Dates: start: 20090528
  12. ASASANTIN /00042901/ [Concomitant]
     Indication: THROMBOSIS PROPHYLAXIS
     Dates: start: 20090528
  13. ALLOPURINOL [Concomitant]
     Indication: GOUT
     Dates: start: 20070101

REACTIONS (6)
  - BLOOD CHLORIDE DECREASED [None]
  - BLOOD LACTATE DEHYDROGENASE INCREASED [None]
  - BLOOD SODIUM DECREASED [None]
  - PLATELET COUNT INCREASED [None]
  - PULMONARY EMBOLISM [None]
  - WHITE BLOOD CELL COUNT INCREASED [None]
